FAERS Safety Report 19830317 (Version 1)
Quarter: 2021Q3

REPORT INFORMATION
  Report Type: Spontaneous
  Country: JP (occurrence: JP)
  Receive Date: 20210915
  Receipt Date: 20210915
  Transmission Date: 20211014
  Serious: Yes (Other)
  Sender: FDA-Public Use
  Company Number: JP-TEVA-2021-JP-1953767

PATIENT
  Age: 7 Decade
  Sex: Male

DRUGS (3)
  1. LEVODOPA [Concomitant]
     Active Substance: LEVODOPA
     Route: 065
  2. NEUPRO [Concomitant]
     Active Substance: ROTIGOTINE
     Route: 062
  3. AZILECT [Suspect]
     Active Substance: RASAGILINE MESYLATE
     Indication: PARKINSON^S DISEASE
     Dosage: 1 MILLIGRAM DAILY;
     Route: 048
     Dates: start: 20190222, end: 20190301

REACTIONS (3)
  - Physical deconditioning [Unknown]
  - Metastases to liver [Unknown]
  - Colon cancer [Unknown]
